FAERS Safety Report 25707181 (Version 1)
Quarter: 2025Q3

REPORT INFORMATION
  Report Type: Report from Study
  Country: CA (occurrence: CA)
  Receive Date: 20250820
  Receipt Date: 20250820
  Transmission Date: 20251021
  Serious: Yes (Hospitalization, Other)
  Sender: ABBVIE
  Company Number: CA-ABBVIE-6418996

PATIENT
  Age: 55 Year
  Sex: Male

DRUGS (1)
  1. SKYRIZI [Suspect]
     Active Substance: RISANKIZUMAB-RZAA
     Indication: Crohn^s disease
     Route: 042
     Dates: start: 2023

REACTIONS (9)
  - Obstruction [Recovered/Resolved]
  - Small intestinal anastomosis [Unknown]
  - Intestinal anastomosis [Unknown]
  - Stenosis [Unknown]
  - Ulcer [Unknown]
  - Lower gastrointestinal haemorrhage [Unknown]
  - Abdominal pain [Not Recovered/Not Resolved]
  - Faecal calprotectin increased [Unknown]
  - Anaemia [Not Recovered/Not Resolved]

NARRATIVE: CASE EVENT DATE: 20250101
